FAERS Safety Report 5737968-7 (Version None)
Quarter: 2008Q2

REPORT INFORMATION
  Report Type: 
  Country: None (occurrence: None)
  Receive Date: 20080509
  Receipt Date: 20080428
  Transmission Date: 20081010
  Serious: Yes (Hospitalization)
  Sender: FDA-Public Use
  Company Number: TCI2008A02111

PATIENT
  Age: 48 Year
  Sex: Female

DRUGS (3)
  1. LEUPROLIDE ACETATE [Suspect]
     Indication: ARTIFICIAL MENOPAUSE
     Dosage: 1.88 MG (1.88 MG,1 IN 28 D),	 SUBCUTANEOUS
     Route: 058
     Dates: start: 20070224, end: 20070224
  2. IRON (INJECTION) [Concomitant]
  3. LASIX [Concomitant]

REACTIONS (13)
  - BLOOD PRESSURE INCREASED [None]
  - CARDIAC FAILURE CONGESTIVE [None]
  - DEPRESSED LEVEL OF CONSCIOUSNESS [None]
  - DISSEMINATED INTRAVASCULAR COAGULATION [None]
  - ELECTROCARDIOGRAM QT PROLONGED [None]
  - ELECTROCARDIOGRAM T WAVE INVERSION [None]
  - FALL [None]
  - PANCYTOPENIA [None]
  - PULMONARY OEDEMA [None]
  - PYELONEPHRITIS [None]
  - SEPTIC SHOCK [None]
  - STRESS CARDIOMYOPATHY [None]
  - VENTRICULAR FIBRILLATION [None]
